FAERS Safety Report 19352466 (Version 1)
Quarter: 2021Q2

REPORT INFORMATION
  Report Type: Spontaneous
  Country: US (occurrence: US)
  Receive Date: 20210531
  Receipt Date: 20210531
  Transmission Date: 20210717
  Serious: No
  Sender: FDA-Public Use
  Company Number: US-ASTRAZENECA-2021A462780

PATIENT
  Sex: Female

DRUGS (1)
  1. DALIRESP [Suspect]
     Active Substance: ROFLUMILAST
     Dosage: 500.0UG UNKNOWN
     Route: 048

REACTIONS (3)
  - Skin atrophy [Not Recovered/Not Resolved]
  - Product package associated injury [Unknown]
  - Anaemia [Not Recovered/Not Resolved]
